FAERS Safety Report 26201786 (Version 1)
Quarter: 2025Q4

REPORT INFORMATION
  Report Type: Spontaneous
  Country: EU (occurrence: EU)
  Receive Date: 20251226
  Receipt Date: 20251226
  Transmission Date: 20260117
  Serious: Yes (Other)
  Sender: AUROBINDO
  Company Number: EU-MINISAL02-1071880

PATIENT
  Age: 56 Year
  Sex: Female

DRUGS (3)
  1. AZITHROMYCIN DIHYDRATE [Suspect]
     Active Substance: AZITHROMYCIN DIHYDRATE
     Indication: Oropharyngeal pain
     Dosage: 100 MILLIGRAM, 1 TOTAL (AZITROMICINA 100MG (LOTTO E SPECIALIT? SCONOSCIUTI) 1 COMPRESSA)
     Route: 061
     Dates: start: 20241224, end: 20241224
  2. IBUPROFEN [Suspect]
     Active Substance: IBUPROFEN
     Indication: Oropharyngeal pain
     Dosage: 400 MILLIGRAM, 1 TOTAL (BRUFEN 400MG, 1 COMPRESSA (LOTTO SCONOSCIUTO))
     Route: 061
  3. BISOPROLOL FUMARATE\PERINDOPRIL ARGININE [Concomitant]
     Active Substance: BISOPROLOL FUMARATE\PERINDOPRIL ARGININE
     Indication: Hypertension
     Dosage: 10 MILLIGRAM, ONCE A DAY (COSYREL 5MG/5MG (LOTTO SCONOSCIUTO) 1/DIE)
     Route: 061

REACTIONS (4)
  - Periorbital swelling [Recovered/Resolved]
  - Swelling face [Recovered/Resolved]
  - Pruritus [Recovered/Resolved]
  - Hypoaesthesia oral [Recovered/Resolved]

NARRATIVE: CASE EVENT DATE: 20241224
